FAERS Safety Report 5730360-0 (Version None)
Quarter: 2008Q2

REPORT INFORMATION
  Report Type: 
  Country: None (occurrence: None)
  Receive Date: 20080505
  Receipt Date: 20080505
  Transmission Date: 20081010
  Serious: No
  Sender: FDA-Public Use
  Company Number: None

PATIENT
  Age: 44 Year
  Sex: Male
  Weight: 104.3273 kg

DRUGS (1)
  1. DIGITEK 0.25MG BERTEK [Suspect]
     Dosage: 0.25MG 1QD PO 4-5 YEARS
     Route: 048
     Dates: start: 20000102, end: 20080501

REACTIONS (2)
  - CARDIAC FAILURE CONGESTIVE [None]
  - FATIGUE [None]
